FAERS Safety Report 4870152-8 (Version None)
Quarter: 2005Q4

REPORT INFORMATION
  Report Type: 
  Country: None (occurrence: None)
  Receive Date: 20051229
  Receipt Date: 20051229
  Transmission Date: 20060501
  Serious: No
  Sender: FDA-Public Use
  Company Number: None

PATIENT
  Age: 80 Year
  Sex: Male
  Weight: 87.5442 kg

DRUGS (1)
  1. ALFUZOSIN    10MG     SANOFI-SYNTHELABO [Suspect]
     Indication: BENIGN PROSTATIC HYPERPLASIA
     Dosage: 10MG  QDAILY  PO
     Route: 048
     Dates: start: 20051209, end: 20051214

REACTIONS (2)
  - CONSTIPATION [None]
  - URINARY RETENTION [None]
